FAERS Safety Report 7692464-5 (Version None)
Quarter: 2011Q3

REPORT INFORMATION
  Report Type: 
  Country: None (occurrence: None)
  Receive Date: 20110818
  Receipt Date: 20110714
  Transmission Date: 20111222
  Serious: No
  Sender: FDA-Public Use
  Company Number: US-ALLERGAN-1109538US

PATIENT
  Age: 74 Year
  Sex: Female

DRUGS (2)
  1. ACUVAIL [Suspect]
  2. ACUVAIL [Suspect]
     Indication: CATARACT
     Dosage: 2 GTT, BID
     Dates: start: 20110712, end: 20110714

REACTIONS (3)
  - PHARYNGEAL ERYTHEMA [None]
  - SENSATION OF FOREIGN BODY [None]
  - GLOSSITIS [None]
